FAERS Safety Report 6665581-6 (Version None)
Quarter: 2010Q1

REPORT INFORMATION
  Report Type: 
  Country: None (occurrence: None)
  Receive Date: 20100330
  Receipt Date: 20100308
  Transmission Date: 20100710
  Serious: Yes (Other)
  Sender: FDA-Public Use
  Company Number: 2010US000785

PATIENT
  Sex: Female

DRUGS (6)
  1. LEXISCAN [Suspect]
     Indication: SCAN MYOCARDIAL PERFUSION
     Dosage: IV NOS
     Route: 042
     Dates: start: 20100308, end: 20100308
  2. BENADRYL [Suspect]
     Indication: ERYTHEMA
     Dosage: 50 MG, TOTAL DOSE, IV NOS
     Route: 042
     Dates: start: 20100308, end: 20100308
  3. BENADRYL [Suspect]
     Indication: HEADACHE
     Dosage: 50 MG, TOTAL DOSE, IV NOS
     Route: 042
     Dates: start: 20100308, end: 20100308
  4. BENADRYL [Suspect]
     Indication: HYPERSENSITIVITY
     Dosage: 50 MG, TOTAL DOSE, IV NOS
     Route: 042
     Dates: start: 20100308, end: 20100308
  5. BENADRYL [Suspect]
     Indication: PAIN IN JAW
     Dosage: 50 MG, TOTAL DOSE, IV NOS
     Route: 042
     Dates: start: 20100308, end: 20100308
  6. BENADRYL [Suspect]
     Indication: SWOLLEN TONGUE
     Dosage: 50 MG, TOTAL DOSE, IV NOS
     Route: 042
     Dates: start: 20100308, end: 20100308

REACTIONS (7)
  - DRUG HYPERSENSITIVITY [None]
  - HEADACHE [None]
  - PAIN IN JAW [None]
  - RASH MACULAR [None]
  - SWOLLEN TONGUE [None]
  - SYNCOPE [None]
  - TREMOR [None]
